FAERS Safety Report 8177835-5 (Version None)
Quarter: 2012Q1

REPORT INFORMATION
  Report Type: 
  Country: None (occurrence: None)
  Receive Date: 20120301
  Receipt Date: 20120220
  Transmission Date: 20120608
  Serious: Yes (Death, Hospitalization)
  Sender: FDA-Public Use
  Company Number: US-MERCK-1202USA04053

PATIENT
  Age: 55 Year
  Sex: Male

DRUGS (2)
  1. DECADRON [Suspect]
     Indication: MALIGNANT MELANOMA
     Route: 048
  2. DECADRON [Suspect]
     Indication: METASTASES TO CENTRAL NERVOUS SYSTEM
     Route: 048

REACTIONS (1)
  - ENCEPHALITIS HERPES [None]
